FAERS Safety Report 7214585-3 (Version None)
Quarter: 2011Q1

REPORT INFORMATION
  Report Type: 
  Country: None (occurrence: None)
  Receive Date: 20110107
  Receipt Date: 20101228
  Transmission Date: 20110831
  Serious: Yes (Hospitalization)
  Sender: FDA-Public Use
  Company Number: US-ABBOTT-10P-163-0694302-00

PATIENT
  Sex: Male
  Weight: 98.972 kg

DRUGS (7)
  1. HUMIRA [Suspect]
     Indication: ANKYLOSING SPONDYLITIS
     Dates: start: 20090801, end: 20101101
  2. ZETIA [Concomitant]
     Indication: HYPERLIPIDAEMIA
  3. AMPRIL [Concomitant]
     Indication: HYPERTENSION
  4. INSULIN [Concomitant]
     Indication: DIABETES MELLITUS
  5. LIPITOR [Concomitant]
     Indication: HYPERLIPIDAEMIA
  6. CELEBREX [Concomitant]
     Indication: PAIN
  7. VITAMIN D [Concomitant]
     Indication: VITAMIN D DEFICIENCY

REACTIONS (6)
  - DRUG INEFFECTIVE [None]
  - MALAISE [None]
  - PAIN [None]
  - STAPHYLOCOCCAL INFECTION [None]
  - PYREXIA [None]
  - STAPHYLOCOCCAL SEPSIS [None]
